FAERS Safety Report 13049334 (Version 1)
Quarter: 2016Q4

REPORT INFORMATION
  Report Type: Spontaneous
  Country: CH (occurrence: CH)
  Receive Date: 20161221
  Receipt Date: 20161221
  Transmission Date: 20170207
  Serious: Yes (Hospitalization)
  Sender: FDA-Public Use
  Company Number: CH-ROCHE-1868452

PATIENT
  Age: 77 Year
  Sex: Male

DRUGS (12)
  1. CONCOR [Concomitant]
     Active Substance: BISOPROLOL FUMARATE
     Route: 048
  2. PREDNISON [Concomitant]
     Active Substance: PREDNISONE
     Route: 048
  3. SANDIMMUN NEORAL [Concomitant]
     Active Substance: CYCLOSPORINE
     Route: 048
  4. LESCOL [Concomitant]
     Active Substance: FLUVASTATIN SODIUM
     Route: 065
  5. IMUREK [Concomitant]
     Active Substance: AZATHIOPRINE
     Route: 048
  6. CORDARONE [Concomitant]
     Active Substance: AMIODARONE HYDROCHLORIDE
     Route: 048
  7. MARCOUMAR [Concomitant]
     Active Substance: PHENPROCOUMON
     Route: 048
  8. VI-DE 3 [Concomitant]
     Active Substance: CHOLECALCIFEROL
     Route: 048
  9. ESOMEP MUPS [Concomitant]
     Active Substance: OMEPRAZOLE
     Route: 048
  10. VALCYTE [Suspect]
     Active Substance: VALGANCICLOVIR HYDROCHLORIDE
     Indication: CYTOMEGALOVIRUS INFECTION
     Route: 048
     Dates: start: 20161101, end: 20161116
  11. DANCOR [Concomitant]
     Active Substance: NICORANDIL
     Route: 048
  12. PADMED CIRCOSAN [Concomitant]
     Active Substance: CALCIUM SULFATE\CAMPHOR\HERBALS
     Route: 048

REACTIONS (1)
  - Vertigo [Recovered/Resolved]

NARRATIVE: CASE EVENT DATE: 20161101
